FAERS Safety Report 14208342 (Version 2)
Quarter: 2017Q4

REPORT INFORMATION
  Report Type: Report from Study
  Country: None (occurrence: BE)
  Receive Date: 20171121
  Receipt Date: 20171122
  Transmission Date: 20180321
  Serious: Yes (Hospitalization)
  Sender: FDA-Public Use
  Company Number: BE-ABBVIE-17P-013-2166747-00

PATIENT
  Age: 87 Year
  Sex: Female
  Weight: 51.8 kg

DRUGS (20)
  1. PANTOMED (PANTOPRAZOLE SODIUM) [Concomitant]
     Active Substance: PANTOPRAZOLE SODIUM
     Indication: PROPHYLAXIS
     Route: 048
     Dates: start: 2011
  2. DIAZEPAM TEVA [Concomitant]
     Active Substance: DIAZEPAM
     Indication: ANXIETY
     Route: 048
     Dates: start: 2017
  3. CEFAZOLINE MYLAN [Concomitant]
     Active Substance: CEFAZOLIN SODIUM
     Indication: PROPHYLAXIS
     Route: 042
     Dates: start: 20170821, end: 20170821
  4. RIOPAN [Concomitant]
     Active Substance: MAGALDRATE
     Indication: PROPHYLAXIS
     Route: 048
     Dates: start: 20161220
  5. TOBREX [Concomitant]
     Active Substance: TOBRAMYCIN
     Indication: DRY EYE
     Route: 047
     Dates: start: 2017
  6. MIRAPEXIN [Concomitant]
     Active Substance: PRAMIPEXOLE
     Indication: PARKINSON^S DISEASE
     Route: 048
     Dates: start: 200506, end: 20170820
  7. AMLOR [Concomitant]
     Active Substance: AMLODIPINE BESYLATE
     Indication: HYPERTENSION
     Route: 048
     Dates: start: 20170825, end: 20170828
  8. D-VITAL [Concomitant]
     Indication: OSTEOPOROSIS
     Route: 048
     Dates: start: 2017
  9. DAFALGAN [Concomitant]
     Active Substance: ACETAMINOPHEN
     Indication: PAIN
     Route: 048
  10. PARACETAMOL [Concomitant]
     Active Substance: ACETAMINOPHEN
     Indication: PROPHYLAXIS
     Route: 042
     Dates: start: 20170821, end: 20170821
  11. PROLOPA [Concomitant]
     Active Substance: BENSERAZIDE\LEVODOPA
     Indication: PARKINSON^S DISEASE
     Route: 048
  12. PLAVIX [Concomitant]
     Active Substance: CLOPIDOGREL BISULFATE
     Indication: ANTICOAGULANT THERAPY
     Route: 048
     Dates: start: 200007
  13. SERENASE [Concomitant]
     Active Substance: HALOPERIDOL
     Indication: PSYCHOTIC DISORDER
     Route: 048
     Dates: start: 2000
  14. QUETIAPINE TEVA [Concomitant]
     Active Substance: QUETIAPINE
     Indication: DEPRESSION
     Route: 048
     Dates: start: 20170822
  15. AMLOR [Concomitant]
     Active Substance: AMLODIPINE BESYLATE
     Indication: HOSPITALISATION
  16. DUODOPA [Suspect]
     Active Substance: CARBIDOPA\LEVODOPA
     Indication: PARKINSON^S DISEASE
     Route: 050
  17. AZILECT [Concomitant]
     Active Substance: RASAGILINE MESYLATE
     Indication: PARKINSON^S DISEASE
     Route: 048
     Dates: start: 20090401
  18. LYSOMUCIL [Concomitant]
     Active Substance: ACETYLCYSTEINE
     Indication: SECRETION DISCHARGE
     Route: 048
     Dates: start: 20161220, end: 201708
  19. SYSTANE (HYPROMELLOSE 2910 (4000 MPA.S)) [Concomitant]
     Active Substance: HYPROMELLOSE 2910 (4000 MPA.S)
     Indication: DRY EYE
     Route: 047
     Dates: start: 2017
  20. TRAFLOXAL [Concomitant]
     Indication: EYE DISORDER
     Route: 047
     Dates: start: 2016, end: 201708

REACTIONS (2)
  - Arthralgia [Not Recovered/Not Resolved]
  - Fall [Not Recovered/Not Resolved]

NARRATIVE: CASE EVENT DATE: 20171114
